FAERS Safety Report 7824613-X (Version None)
Quarter: 2011Q4

REPORT INFORMATION
  Report Type: 
  Country: None (occurrence: None)
  Receive Date: 20111019
  Receipt Date: 20111017
  Transmission Date: 20120403
  Serious: Yes (Other)
  Sender: FDA-Public Use
  Company Number: AU-SHIRE-SPV1-2011-01248

PATIENT
  Sex: Male

DRUGS (6)
  1. CINACALCET [Concomitant]
     Indication: PRODUCT USED FOR UNKNOWN INDICATION
  2. FOSRENOL [Suspect]
     Dosage: 500 MG, 3X/DAY:TID
     Dates: start: 20090901, end: 20100101
  3. FOSRENOL [Suspect]
     Indication: PRODUCT USED FOR UNKNOWN INDICATION
     Dosage: 1000 MG, 3X/DAY:TID
     Dates: start: 20100101, end: 20110101
  4. CALCITRIOL [Concomitant]
     Indication: PRODUCT USED FOR UNKNOWN INDICATION
  5. ASPIRIN [Concomitant]
     Indication: PRODUCT USED FOR UNKNOWN INDICATION
  6. ANTIHYPERTENSIVE [Concomitant]

REACTIONS (1)
  - CEREBELLAR SYNDROME [None]
